FAERS Safety Report 5159224-0 (Version None)
Quarter: 2006Q4

REPORT INFORMATION
  Report Type: 
  Country: None (occurrence: None)
  Receive Date: 20061128
  Receipt Date: 20060811
  Transmission Date: 20070319
  Serious: Yes (Other)
  Sender: FDA-Public Use
  Company Number: US-GILEAD-2006-0010032

PATIENT
  Sex: Female
  Weight: 48.124 kg

DRUGS (1)
  1. HEPSERA [Suspect]
     Indication: DRUG USE FOR UNKNOWN INDICATION

REACTIONS (2)
  - CHORIOAMNIONITIS [None]
  - PREGNANCY [None]
